FAERS Safety Report 16441614 (Version 2)
Quarter: 2019Q3

REPORT INFORMATION
  Report Type: Spontaneous
  Country: ES (occurrence: ES)
  Receive Date: 20190617
  Receipt Date: 20190703
  Transmission Date: 20191004
  Serious: Yes (Hospitalization, Other)
  Sender: FDA-Public Use
  Company Number: ES-MYLANLABS-2019M1056567

PATIENT
  Age: 87 Year
  Sex: Male
  Weight: 87 kg

DRUGS (34)
  1. METAMIZOLE SODIUM [Suspect]
     Active Substance: METAMIZOLE SODIUM
     Dosage: 1 DOSAGE FORM, QD
     Route: 042
     Dates: start: 20170801
  2. FLUCONAZOLE. [Suspect]
     Active Substance: FLUCONAZOLE
     Indication: PRODUCT USED FOR UNKNOWN INDICATION
     Dosage: 200 MG,QD
     Route: 042
     Dates: start: 20170810
  3. JUNIPER OIL [Concomitant]
     Active Substance: HERBALS\JUNIPERUS COMMUNIS WHOLE
     Dosage: 1 DF,QD
     Route: 065
  4. MONOLITUM [Concomitant]
     Active Substance: LANSOPRAZOLE
     Dosage: 30 MG,QD
     Route: 065
  5. CEFTRIAXONE. [Suspect]
     Active Substance: CEFTRIAXONE
     Indication: PRODUCT USED FOR UNKNOWN INDICATION
     Dosage: 500 MG,UNK
     Route: 030
     Dates: start: 201708, end: 20170812
  6. ZYLORIC [Concomitant]
     Active Substance: ALLOPURINOL
     Dosage: 100 MG,QD
     Route: 065
  7. BILAXTEN [Concomitant]
     Active Substance: BILASTINE
     Dosage: 20 MG,QD
     Route: 048
     Dates: start: 20170726
  8. ENALAPRIL [Concomitant]
     Active Substance: ENALAPRIL
     Dosage: 5 MG,QD
     Route: 065
  9. EUCERIN                            /02137501/ [Concomitant]
     Dosage: UNK UNK,UNK
     Route: 065
  10. BETAMETHASONE. [Concomitant]
     Active Substance: BETAMETHASONE
     Dosage: 1 DOSAGE FORM, BID,Q12H
     Route: 065
     Dates: start: 201704
  11. SPIRONOLACTONE. [Concomitant]
     Active Substance: SPIRONOLACTONE
     Dosage: 25 MG,QD
     Route: 065
     Dates: start: 20170802
  12. ALLOPURINOL. [Suspect]
     Active Substance: ALLOPURINOL
     Dosage: UNK
     Route: 065
     Dates: start: 20110101
  13. METAMIZOLE SODIUM [Suspect]
     Active Substance: METAMIZOLE SODIUM
     Indication: PRODUCT USED FOR UNKNOWN INDICATION
     Dosage: UNK UNK,UNK
     Route: 042
     Dates: start: 201708
  14. ACICLOVIR [Suspect]
     Active Substance: ACYCLOVIR
     Indication: ERYTHRODERMIC PSORIASIS
     Dosage: 400 MILLIGRAM, Q8H
     Route: 042
     Dates: start: 20170810
  15. ACICLOVIR [Suspect]
     Active Substance: ACYCLOVIR
     Dosage: 1200 MILLIGRAM, QD
     Route: 042
     Dates: start: 20170810
  16. AUXINA A+E [Concomitant]
     Dosage: 1 DOSAGE FORM, QD
     Route: 048
     Dates: start: 201704, end: 20170726
  17. SIMVASTATIN. [Concomitant]
     Active Substance: SIMVASTATIN
     Dosage: 20 MG,QD
     Route: 065
  18. CEFTRIAXONE. [Suspect]
     Active Substance: CEFTRIAXONE
     Dosage: 500 MILLIGRAM, QD
     Route: 030
     Dates: start: 20170801, end: 20170812
  19. NEOTIGASON [Suspect]
     Active Substance: ACITRETIN
     Dosage: 50 MILLIGRAM, QD
     Route: 065
     Dates: start: 20170728
  20. DIPROGENTA [Concomitant]
     Active Substance: BETAMETHASONE DIPROPIONATE\GENTAMICIN SULFATE
     Dosage: UNK UNK, BID,UNK UNK,Q12H
     Route: 061
  21. SEGURIL [Concomitant]
     Active Substance: FUROSEMIDE
     Dosage: 60 MG,QD
     Route: 065
     Dates: start: 20170802
  22. NEOTIGASON [Suspect]
     Active Substance: ACITRETIN
     Indication: ERYTHRODERMIC PSORIASIS
     Dosage: 25 MG,QD
     Route: 065
     Dates: start: 20170728
  23. ACICLOVIR [Suspect]
     Active Substance: ACYCLOVIR
     Dosage: 45 MILLIGRAM, QD
     Route: 042
     Dates: start: 20170810
  24. AZITHROMYCIN ANHYDROUS. [Concomitant]
     Active Substance: AZITHROMYCIN ANHYDROUS
     Dosage: UNK
     Dates: start: 20170812
  25. OMNIC OCAS [Concomitant]
     Active Substance: TAMSULOSIN HYDROCHLORIDE
     Dosage: 1 DOSAGE FORM, QD
     Route: 065
  26. PARACETAMOL [Concomitant]
     Active Substance: ACETAMINOPHEN
     Dosage: 650 MG,Q12H
     Route: 065
  27. SALMETEROL [Concomitant]
     Active Substance: SALMETEROL
     Dosage: 1 DOSAGE FORM, BID,,Q12H
     Route: 055
  28. ALLOPURINOL. [Suspect]
     Active Substance: ALLOPURINOL
     Indication: HYPERURICAEMIA
     Dosage: UNK UNK,UNK
     Route: 065
     Dates: start: 2011
  29. STELARA [Suspect]
     Active Substance: USTEKINUMAB
     Indication: PSORIASIS
     Dosage: 45 MG,BID
     Route: 058
     Dates: start: 20170803, end: 20170803
  30. STELARA [Suspect]
     Active Substance: USTEKINUMAB
     Indication: ERYTHRODERMIC PSORIASIS
     Dosage: 45 MG,BID
     Route: 058
     Dates: start: 20170803, end: 20170803
  31. DACORTIN [Concomitant]
     Active Substance: PREDNISONE
     Dosage: 5 MG,QD
     Route: 065
     Dates: start: 20170801
  32. ACITRETIN. [Concomitant]
     Active Substance: ACITRETIN
     Dosage: 25 MG,QD
     Route: 065
     Dates: start: 20170728
  33. LORATADINE. [Concomitant]
     Active Substance: LORATADINE
     Dosage: 10 MG,QD
     Route: 048
     Dates: start: 20170726
  34. BRETARIS GENUAIR [Concomitant]
     Active Substance: ACLIDINIUM BROMIDE
     Dosage: 1 DF,Q12H
     Route: 055

REACTIONS (3)
  - Oral candidiasis [Recovering/Resolving]
  - Toxic epidermal necrolysis [Recovered/Resolved]
  - Fungal infection [Recovering/Resolving]

NARRATIVE: CASE EVENT DATE: 2017
